FAERS Safety Report 9237321 (Version 1)
Quarter: 2013Q2

REPORT INFORMATION
  Report Type: Spontaneous
  Country: GR (occurrence: GR)
  Receive Date: 20130417
  Receipt Date: 20130417
  Transmission Date: 20140414
  Serious: Yes (Hospitalization)
  Sender: FDA-Public Use
  Company Number: GR-MYLANLABS-2013S1007863

PATIENT
  Age: 72 Year
  Sex: Female

DRUGS (7)
  1. VALACICLOVIR [Suspect]
     Indication: HERPES ZOSTER
     Dosage: 3G DAILY
     Route: 065
  2. NIFEDIPINE [Concomitant]
     Dosage: 5MG DAILY
     Route: 065
  3. IRBESARTAN [Concomitant]
     Dosage: 150MG DAILY
     Route: 065
  4. CINACALCET [Concomitant]
     Dosage: 60MG DAILY
     Route: 065
  5. ATORVASTATIN [Concomitant]
     Dosage: 10MG DAILY
     Route: 065
  6. ALFACALCIDOL [Concomitant]
     Dosage: 1MICROG DAILY
     Route: 065
  7. GLUCOSE [Concomitant]
     Indication: PERITONEAL DIALYSIS
     Dosage: THREE 2L EXCHANGES DAILY WITH 2.5% GLUCOSE
     Route: 033

REACTIONS (11)
  - Neurotoxicity [Recovering/Resolving]
  - Confusional state [Recovering/Resolving]
  - Hallucination, visual [Recovered/Resolved]
  - Dysarthria [Recovered/Resolved]
  - Dysaesthesia [Recovering/Resolving]
  - Dizziness [Recovered/Resolved]
  - Disorientation [Recovered/Resolved]
  - Hypoaesthesia [Recovering/Resolving]
  - Coordination abnormal [Recovering/Resolving]
  - Agitation [Recovering/Resolving]
  - Nightmare [Recovering/Resolving]
